FAERS Safety Report 9312345 (Version 1)
Quarter: 2013Q2

REPORT INFORMATION
  Report Type: Spontaneous
  Country: US (occurrence: None)
  Receive Date: 20130508
  Receipt Date: 20130508
  Transmission Date: 20140414
  Serious: Yes (Hospitalization)
  Sender: FDA-Public Use
  Company Number: AEUSA201300158

PATIENT
  Age: 41 Year
  Sex: Female
  Weight: 59 kg

DRUGS (4)
  1. GAMUNEX-C [Suspect]
     Indication: CHRONIC INFLAMMATORY DEMYELINATING POLYRADICULONEUROPATHY
     Route: 042
     Dates: start: 20130408
  2. NEXIUM [Concomitant]
  3. SYNTHROID [Concomitant]
  4. ADVAIR [Concomitant]

REACTIONS (7)
  - Infusion related reaction [None]
  - Pain in extremity [None]
  - Influenza like illness [None]
  - Pyrexia [None]
  - Platelet count decreased [None]
  - White blood cell count decreased [None]
  - Headache [None]
